FAERS Safety Report 22741163 (Version 2)
Quarter: 2024Q3

REPORT INFORMATION
  Report Type: Report from Study
  Country: US (occurrence: US)
  Receive Date: 20230724
  Receipt Date: 20240808
  Transmission Date: 20241017
  Serious: Yes (Other)
  Sender: ABBVIE
  Company Number: US-ABBVIE-5335642

PATIENT
  Sex: Female

DRUGS (1)
  1. IMBRUVICA [Suspect]
     Active Substance: IBRUTINIB
     Indication: Chronic lymphocytic leukaemia
     Route: 048
     Dates: start: 20210621

REACTIONS (7)
  - Spinal column injury [Unknown]
  - Cataract [Unknown]
  - Fall [Unknown]
  - Arthralgia [Unknown]
  - Bone pain [Unknown]
  - Oesophageal disorder [Unknown]
  - Colitis ulcerative [Unknown]
